FAERS Safety Report 6708267-1 (Version None)
Quarter: 2010Q2

REPORT INFORMATION
  Report Type: 
  Country: None (occurrence: None)
  Receive Date: 20100503
  Receipt Date: 20090901
  Transmission Date: 20101027
  Serious: No
  Sender: FDA-Public Use
  Company Number: US-ASTRAZENECA-2009SE10889

PATIENT
  Age: 26626 Day
  Sex: Female

DRUGS (5)
  1. NEXIUM [Suspect]
     Route: 048
  2. COUMADIN [Concomitant]
  3. VERAPAMIL [Concomitant]
  4. TOPROL-XL [Concomitant]
  5. BLUEBERRIES [Concomitant]

REACTIONS (1)
  - FAECES DISCOLOURED [None]
